FAERS Safety Report 11387199 (Version 6)
Quarter: 2015Q4

REPORT INFORMATION
  Report Type: Spontaneous
  Country: JP (occurrence: JP)
  Receive Date: 20150817
  Receipt Date: 20151029
  Transmission Date: 20160304
  Serious: Yes (Hospitalization, Other)
  Sender: FDA-Public Use
  Company Number: JP-SA-2015SA119838

PATIENT
  Age: 63 Year
  Sex: Male

DRUGS (4)
  1. WARFARIN [Concomitant]
     Active Substance: WARFARIN
  2. JEVTANA [Suspect]
     Active Substance: CABAZITAXEL
     Indication: PROSTATE CANCER
     Route: 042
     Dates: start: 20150803
  3. JEVTANA [Suspect]
     Active Substance: CABAZITAXEL
     Indication: PROSTATE CANCER
     Route: 042
     Dates: start: 20150902, end: 20150902
  4. G-LASTA [Concomitant]
     Active Substance: PEGFILGRASTIM
     Dates: start: 20150805

REACTIONS (3)
  - International normalised ratio increased [Recovered/Resolved]
  - Malaise [Recovered/Resolved]
  - Neutropenia [Recovered/Resolved]

NARRATIVE: CASE EVENT DATE: 201508
